FAERS Safety Report 15179235 (Version 1)
Quarter: 2018Q3

REPORT INFORMATION
  Report Type: Spontaneous
  Country: US (occurrence: US)
  Receive Date: 20180723
  Receipt Date: 20180723
  Transmission Date: 20181010
  Serious: No
  Sender: FDA-Public Use
  Company Number: US-009507513-1106USA00856

PATIENT
  Age: 33 Year
  Sex: Female

DRUGS (5)
  1. ISENTRESS [Suspect]
     Active Substance: RALTEGRAVIR POTASSIUM
     Dosage: COURSE NUMBER 1 AND TOTAL DAILY DOSE 800
     Route: 048
  2. ABACAVIR SULFATE (+) LAMIVUDINE [Suspect]
     Active Substance: ABACAVIR SULFATE\LAMIVUDINE
     Dosage: COURSE NUMBER 1 AND TOTAL DAILY DOSE 1
     Route: 048
  3. ZIDOVUDINE. [Suspect]
     Active Substance: ZIDOVUDINE
     Dosage: COURSE NUMBER 2 AND TOTAL DAILY DOSE 1
     Route: 042
  4. LOPINAVIR (+) RITONAVIR [Suspect]
     Active Substance: LOPINAVIR\RITONAVIR
     Dosage: COURSE NUMBER 1 AND TOTAL DAILY DOSE 4
     Route: 048
  5. TENOFOVIR DISOPROXIL FUMARATE. [Suspect]
     Active Substance: TENOFOVIR DISOPROXIL FUMARATE
     Dosage: COURSE NUMBER 1 AND TOTAL DAILY DOSE 300
     Route: 048

REACTIONS (2)
  - No adverse event [Unknown]
  - Maternal exposure during pregnancy [Recovered/Resolved]
